FAERS Safety Report 9456020 (Version 1)
Quarter: 2013Q3

REPORT INFORMATION
  Report Type: Spontaneous
  Country: AT (occurrence: None)
  Receive Date: 20130808
  Receipt Date: 20130808
  Transmission Date: 20140515
  Serious: Yes (Other)
  Sender: FDA-Public Use
  Company Number: NGX_01923_2013

PATIENT
  Age: 49 Year
  Sex: Female

DRUGS (1)
  1. QUTENZA [Suspect]
     Indication: PARAESTHESIA
     Dosage: DF
     Route: 061
     Dates: start: 20130724, end: 20130724

REACTIONS (3)
  - Application site pain [None]
  - Oral discomfort [None]
  - Off label use [None]
